FAERS Safety Report 11308706 (Version 2)
Quarter: 2015Q3

REPORT INFORMATION
  Report Type: Spontaneous
  Country: CO (occurrence: CO)
  Receive Date: 20150724
  Receipt Date: 20150804
  Transmission Date: 20151125
  Serious: Yes (Hospitalization, Congenital Anomaly, Other)
  Sender: FDA-Public Use
  Company Number: PHHY2015CO088217

PATIENT
  Weight: 2.9 kg

DRUGS (1)
  1. ACETAMINOPHEN (PARACETAMOL) [Suspect]
     Active Substance: ACETAMINOPHEN
     Indication: PRODUCT USED FOR UNKNOWN INDICATION
     Dosage: 1 G, Q6H
     Route: 064

REACTIONS (6)
  - Ductus arteriosus stenosis foetal [Recovered/Resolved]
  - Cyanosis [Recovered/Resolved]
  - Pulmonary hypertension [Recovered/Resolved]
  - Tachypnoea [Recovered/Resolved]
  - Foetal arrhythmia [Recovered/Resolved]
  - Foetal exposure during pregnancy [Unknown]
